FAERS Safety Report 10039656 (Version 2)
Quarter: 2014Q2

REPORT INFORMATION
  Report Type: Spontaneous
  Country: FR (occurrence: FR)
  Receive Date: 20140326
  Receipt Date: 20140415
  Transmission Date: 20141212
  Serious: Yes (Hospitalization)
  Sender: FDA-Public Use
  Company Number: FR-JNJFOC-20140312529

PATIENT
  Age: 61 Year
  Sex: Male
  Weight: 83 kg

DRUGS (2)
  1. SIMPONI [Suspect]
     Indication: PSORIATIC ARTHROPATHY
     Route: 058
     Dates: start: 20131226, end: 20140131
  2. PARACETAMOL [Concomitant]
     Route: 065
     Dates: start: 2012

REACTIONS (2)
  - Cellulitis [Recovered/Resolved]
  - Abscess [Recovered/Resolved]
